FAERS Safety Report 4945701-1 (Version None)
Quarter: 2006Q1

REPORT INFORMATION
  Report Type: 
  Country: None (occurrence: None)
  Receive Date: 20060117
  Receipt Date: 20050914
  Transmission Date: 20060701
  Serious: Yes (Hospitalization)
  Sender: FDA-Public Use
  Company Number: A03200502933

PATIENT
  Age: 56 Year
  Sex: Female
  Weight: 83.9 kg

DRUGS (6)
  1. PLAVIX [Suspect]
     Indication: ARTERIAL OCCLUSIVE DISEASE
     Dosage: 75 MG QD - ORAL
     Route: 048
     Dates: start: 20050901
  2. VALPROATE SODIUM [Concomitant]
  3. LANSOPRAZOLE [Concomitant]
  4. ATORVASTATIN CALCIUM [Concomitant]
  5. LISINOPRIL [Concomitant]
  6. DILTIAZEM HYDROCHLORIDE [Concomitant]

REACTIONS (3)
  - CAROTID ARTERY OCCLUSION [None]
  - DYSPNOEA [None]
  - FATIGUE [None]
